FAERS Safety Report 23238195 (Version 3)
Quarter: 2024Q1

REPORT INFORMATION
  Report Type: Spontaneous
  Country: DE (occurrence: DE)
  Receive Date: 20231129
  Receipt Date: 20240210
  Transmission Date: 20240410
  Serious: Yes (Hospitalization)
  Sender: FDA-Public Use
  Company Number: DE-DCGMA-23202253

PATIENT
  Age: 47 Year
  Sex: Male
  Weight: 90 kg

DRUGS (13)
  1. RINVOQ [Suspect]
     Active Substance: UPADACITINIB
     Indication: Crohn^s disease
     Route: 048
     Dates: start: 202307
  2. ETORICOXIB [Concomitant]
     Active Substance: ETORICOXIB
     Indication: Oligoarthritis
     Dosage: 3-4 TIMES A WEEK
     Route: 048
  3. BUDESONIDE [Concomitant]
     Active Substance: BUDESONIDE
     Indication: Crohn^s disease
     Dosage: ASSOCIATED WITH RELAPSES INTERMITTENTLY FOR YEARS
     Route: 048
  4. ZINC [Concomitant]
     Active Substance: PYRITHIONE ZINC\ZINC\ZINC CHLORIDE
     Indication: Product used for unknown indication
     Route: 065
  5. FOLIC ACID [Concomitant]
     Active Substance: FOLIC ACID
     Indication: Product used for unknown indication
     Route: 048
     Dates: start: 2016
  6. FOLIC ACID [Concomitant]
     Active Substance: FOLIC ACID
     Indication: Crohn^s disease
     Route: 048
     Dates: start: 2016
  7. METHOTREXATE [Concomitant]
     Active Substance: METHOTREXATE
     Indication: Oligoarthritis
     Route: 048
     Dates: start: 2016
  8. ASPIRIN [Concomitant]
     Active Substance: ASPIRIN
     Indication: Product used for unknown indication
     Route: 065
  9. IRON [Concomitant]
     Active Substance: IRON
     Indication: Mineral supplementation
     Route: 065
  10. VITAMIN D [Concomitant]
     Active Substance: VITAMIN D NOS
     Indication: Vitamin supplementation
     Dosage: 1000 TO 1500 IU
     Route: 065
  11. STELARA [Concomitant]
     Active Substance: USTEKINUMAB
     Indication: Crohn^s disease
     Dosage: IN COMBINATION WITH MTX
     Route: 065
     Dates: start: 201712
  12. METHOTREXATE [Concomitant]
     Active Substance: METHOTREXATE
     Indication: Crohn^s disease
     Route: 048
     Dates: start: 201607, end: 20170804
  13. METHOTREXATE [Concomitant]
     Active Substance: METHOTREXATE
     Indication: Crohn^s disease
     Dosage: COMBINATION WITH USTEKINUMAB
     Route: 048
     Dates: start: 201712

REACTIONS (11)
  - Brain stem infarction [Recovered/Resolved]
  - Transient ischaemic attack [Recovered/Resolved]
  - Endodontic procedure [Unknown]
  - Diplopia [Recovered/Resolved]
  - Headache [Not Recovered/Not Resolved]
  - Hemiparesis [Unknown]
  - Nystagmus [Unknown]
  - Vertigo [Unknown]
  - Feeling cold [Unknown]
  - Arachnoid cyst [Unknown]
  - Cerebral artery stenosis [Unknown]

NARRATIVE: CASE EVENT DATE: 20230101
